FAERS Safety Report 7518557-0 (Version None)
Quarter: 2011Q2

REPORT INFORMATION
  Report Type: 
  Country: None (occurrence: None)
  Receive Date: 20110601
  Receipt Date: 20110601
  Transmission Date: 20111010
  Serious: Yes (Other)
  Sender: FDA-Public Use
  Company Number: None

PATIENT
  Age: 43 Year
  Sex: Female
  Weight: 101.1521 kg

DRUGS (7)
  1. NASONEX [Concomitant]
  2. ZYRTEC [Concomitant]
  3. NORGESTIMATE AND ETHINYL ESTRADIOL [Concomitant]
  4. ADVAIR HFA [Suspect]
     Indication: ASTHMA
     Dosage: 2 PUFFS BID INHAL
     Route: 055
  5. SINGULAIR [Concomitant]
  6. SPIRIVA [Concomitant]
  7. PULMICORT [Concomitant]

REACTIONS (1)
  - ALOPECIA [None]
